FAERS Safety Report 4274264-1 (Version None)
Quarter: 2004Q1

REPORT INFORMATION
  Report Type: 
  Country: None (occurrence: None)
  Receive Date: 20040115
  Receipt Date: 20040106
  Transmission Date: 20041129
  Serious: Yes (Death)
  Sender: FDA-Public Use
  Company Number: 163-20785-03120191

PATIENT
  Age: 79 Year
  Sex: Female

DRUGS (2)
  1. THALOMID [Suspect]
     Indication: MYELOFIBROSIS
     Dosage: 150 MG, QHS, ORAL
     Route: 048
     Dates: start: 20020101, end: 20031101
  2. THALOMID [Suspect]
     Indication: PLATELET COUNT DECREASED
     Dosage: 150 MG, QHS, ORAL
     Route: 048
     Dates: start: 20020101, end: 20031101

REACTIONS (1)
  - CARDIAC FAILURE CONGESTIVE [None]
